FAERS Safety Report 5165650-6 (Version None)
Quarter: 2006Q4

REPORT INFORMATION
  Report Type: 
  Country: None (occurrence: None)
  Receive Date: 20061206
  Receipt Date: 20061124
  Transmission Date: 20070319
  Serious: Yes (Hospitalization)
  Sender: FDA-Public Use
  Company Number: CH-ELI_LILLY_AND_COMPANY-CH200611004580

PATIENT
  Sex: Female

DRUGS (5)
  1. FLUCTINE [Suspect]
     Dosage: 20 MG, DAILY (1/D)
     Route: 048
     Dates: end: 20061008
  2. VOLTAREN [Concomitant]
     Dosage: UNK UNK, DAILY (1/D)
     Route: 048
     Dates: end: 20061006
  3. ASPIRIN [Concomitant]
     Dosage: 100 MG, DAILY (1/D)
     Dates: end: 20061008
  4. ZANIDIP [Concomitant]
     Dosage: UNK UNK, DAILY (1/D)
     Route: 048
  5. DAFALGAN [Concomitant]

REACTIONS (8)
  - ANAEMIA [None]
  - BACK PAIN [None]
  - BLOOD PRESSURE INCREASED [None]
  - GASTRIC ULCER [None]
  - GASTROINTESTINAL HAEMORRHAGE [None]
  - HEART RATE INCREASED [None]
  - HIATUS HERNIA [None]
  - LOSS OF CONSCIOUSNESS [None]
